FAERS Safety Report 7947895-2 (Version None)
Quarter: 2011Q4

REPORT INFORMATION
  Report Type: 
  Country: None (occurrence: None)
  Receive Date: 20111125
  Receipt Date: 20111115
  Transmission Date: 20120403
  Serious: Yes (Hospitalization)
  Sender: FDA-Public Use
  Company Number: 1000024042

PATIENT
  Sex: Female
  Weight: 65.9 kg

DRUGS (2)
  1. LEXAPRO [Suspect]
     Indication: DEPRESSION
     Dosage: 20 MG (20 MG, 1 IN 1 D), ORAL
     Route: 048
     Dates: start: 20071219
  2. SEROQUEL [Suspect]
     Dosage: 300 MG (300 MG, QHS) 100 MG (100 MG, QAM)

REACTIONS (4)
  - BIPOLAR I DISORDER [None]
  - PSYCHOTIC DISORDER [None]
  - LIVER DISORDER [None]
  - AGGRESSION [None]
